FAERS Safety Report 11824417 (Version 1)
Quarter: 2015Q4

REPORT INFORMATION
  Report Type: Spontaneous
  Country: US (occurrence: US)
  Receive Date: 20151210
  Receipt Date: 20151210
  Transmission Date: 20160305
  Serious: No
  Sender: FDA-Public Use
  Company Number: US-BAYER-2015-485126

PATIENT
  Age: 78 Year
  Sex: Female
  Weight: 68.93 kg

DRUGS (1)
  1. CLARITIN [Suspect]
     Active Substance: LORATADINE
     Indication: COUGH
     Dosage: 1 DF, ONCE
     Route: 048
     Dates: start: 20151207, end: 20151207

REACTIONS (5)
  - Somnolence [Not Recovered/Not Resolved]
  - Product use issue [Unknown]
  - Insomnia [Unknown]
  - Initial insomnia [Unknown]
  - Fear [Unknown]

NARRATIVE: CASE EVENT DATE: 20151207
